FAERS Safety Report 5815294-5 (Version None)
Quarter: 2008Q3

REPORT INFORMATION
  Report Type: 
  Country: None (occurrence: None)
  Receive Date: 20080718
  Receipt Date: 20080707
  Transmission Date: 20090109
  Serious: Yes (Hospitalization)
  Sender: FDA-Public Use
  Company Number: US-ELI_LILLY_AND_COMPANY-US200806002846

PATIENT
  Sex: Female

DRUGS (8)
  1. FORTEO [Suspect]
     Indication: OSTEOPOROSIS
  2. LIPITOR [Concomitant]
  3. BELLADONNA ALKALOIDS [Concomitant]
  4. DIAZEPAM [Concomitant]
  5. FLUOXETINE [Concomitant]
  6. CALCIUM [Concomitant]
  7. MULTI-VITAMIN [Concomitant]
  8. GLUCOSAMINE SULFATE W/CHONDROITIN [Concomitant]

REACTIONS (4)
  - DEHYDRATION [None]
  - DIARRHOEA [None]
  - VIRAL INFECTION [None]
  - VOMITING [None]
